FAERS Safety Report 7949022-4 (Version None)
Quarter: 2011Q4

REPORT INFORMATION
  Report Type: 
  Country: None (occurrence: None)
  Receive Date: 20111130
  Receipt Date: 20111116
  Transmission Date: 20120403
  Serious: Yes (Other)
  Sender: FDA-Public Use
  Company Number: US-ELI_LILLY_AND_COMPANY-US201109003259

PATIENT
  Sex: Female

DRUGS (13)
  1. FORTEO [Suspect]
     Indication: OSTEOPOROSIS
     Dosage: 20 UG, QD
     Route: 065
  2. EFFEXOR XR [Concomitant]
     Indication: MOOD ALTERED
     Dosage: 150 MG, QD
  3. ARICEPT [Concomitant]
     Indication: MEMORY IMPAIRMENT
     Dosage: 5 MG, QD
  4. VITAMIN D [Concomitant]
     Dosage: UNK, QD
     Route: 042
  5. DIOVAN [Concomitant]
     Indication: BLOOD PRESSURE ABNORMAL
     Dosage: 40 MG, QD
  6. MULTI-VITAMIN [Concomitant]
  7. ASPIRIN [Concomitant]
     Dosage: 81 MG, QD
  8. CRESTOR [Concomitant]
     Indication: BLOOD CHOLESTEROL
     Dosage: 5 MG, UNK
  9. TOPROL-XL [Concomitant]
     Indication: BLOOD PRESSURE ABNORMAL
     Dosage: 50 MG, QD
  10. ADDERALL XR 10 [Concomitant]
     Indication: NERVOUS SYSTEM DISORDER
     Dosage: 5 MG, UNK
  11. XANAX [Concomitant]
     Dosage: 0.25 MG, PRN
  12. LOVAZA [Concomitant]
     Dosage: 750 MG, QD
  13. OMEPRAZOLE [Concomitant]
     Indication: DYSPEPSIA
     Dosage: 40 MG, QD

REACTIONS (5)
  - DRUG DOSE OMISSION [None]
  - MACULAR DEGENERATION [None]
  - BONE DISORDER [None]
  - COGNITIVE DISORDER [None]
  - TREATMENT NONCOMPLIANCE [None]
